FAERS Safety Report 8482017-3 (Version None)
Quarter: 2012Q3

REPORT INFORMATION
  Report Type: 
  Country: None (occurrence: None)
  Receive Date: 20120702
  Receipt Date: 20120627
  Transmission Date: 20120928
  Serious: Yes (Hospitalization)
  Sender: FDA-Public Use
  Company Number: PHHY2011DE92129

PATIENT
  Sex: Female

DRUGS (9)
  1. NEXIUM [Concomitant]
     Dosage: 1 DF, QD
     Route: 048
  2. GILENYA [Suspect]
     Indication: MULTIPLE SCLEROSIS
     Dosage: 0.5 MG, QD
     Route: 048
     Dates: start: 20110831
  3. FOLSAN [Concomitant]
     Dosage: 1 DF, BID
     Route: 048
  4. TETRA-SAAR [Concomitant]
     Dosage: 1 DF, BID (0.5-0-0.5-0)
     Route: 048
  5. BACLOFEN [Concomitant]
     Dosage: UNK UKN, UNK
     Route: 037
  6. DANTROLENE SODIUM [Concomitant]
     Dosage: 1 DF, QID
     Route: 048
  7. TRAMADOL HYDROCHLORIDE [Concomitant]
     Dosage: 1 DF, BID
     Route: 048
  8. MAGNETRANS FORTE [Concomitant]
     Dosage: 1 DF, BID
     Route: 048
  9. POLYETHYLENE GLYCOL [Concomitant]
     Dosage: 1 DF (13, 13G MACROGOL 3350), BID
     Route: 048

REACTIONS (2)
  - TINEA VERSICOLOUR [None]
  - CONDITION AGGRAVATED [None]
